FAERS Safety Report 4725245-2 (Version None)
Quarter: 2005Q3

REPORT INFORMATION
  Report Type: 
  Country: None (occurrence: None)
  Receive Date: 20050721
  Receipt Date: 20050608
  Transmission Date: 20060218
  Serious: No
  Sender: FDA-Public Use
  Company Number: 2005SP001311

PATIENT
  Age: 60 Year
  Sex: Female

DRUGS (3)
  1. LUNESTA [Suspect]
     Dosage: 2 MG;HS;ORAL
     Route: 048
     Dates: start: 20050401
  2. NEURONTIN [Concomitant]
  3. CARDIZEM [Concomitant]

REACTIONS (1)
  - DIZZINESS [None]
